FAERS Safety Report 11585940 (Version 2)
Quarter: 2015Q4

REPORT INFORMATION
  Report Type: Spontaneous
  Country: US (occurrence: US)
  Receive Date: 20151001
  Receipt Date: 20151002
  Transmission Date: 20160304
  Serious: Yes (Death)
  Sender: FDA-Public Use
  Company Number: US-FRESENIUS KABI-FK201504626

PATIENT
  Age: 60 Year
  Sex: Male

DRUGS (5)
  1. PENTAMIDINE INJECTION (MANUFACTURER UNKNOWN) [Suspect]
     Active Substance: PENTAMIDINE
     Indication: PNEUMONIA
     Route: 065
  2. RALTEGRAVIR. [Suspect]
     Active Substance: RALTEGRAVIR
     Indication: ACQUIRED IMMUNODEFICIENCY SYNDROME
     Route: 065
  3. ABACAVIR. [Suspect]
     Active Substance: ABACAVIR
     Indication: ACQUIRED IMMUNODEFICIENCY SYNDROME
     Route: 065
  4. RITONAVIR. [Suspect]
     Active Substance: RITONAVIR
     Indication: ACQUIRED IMMUNODEFICIENCY SYNDROME
     Route: 065
  5. LAMIVUDINE. [Suspect]
     Active Substance: LAMIVUDINE
     Indication: ACQUIRED IMMUNODEFICIENCY SYNDROME
     Route: 065

REACTIONS (14)
  - Hepatic failure [None]
  - Confusional state [None]
  - Sinus tachycardia [None]
  - Nephropathy toxic [None]
  - Disseminated intravascular coagulation [None]
  - Cardiotoxicity [None]
  - Metabolic acidosis [None]
  - Acute kidney injury [None]
  - Hypoxia [None]
  - Multi-organ failure [Fatal]
  - Pancreatitis acute [None]
  - Bundle branch block left [None]
  - Hyperglycaemia [None]
  - Hypotension [None]
